FAERS Safety Report 9658751 (Version 2)
Quarter: 2013Q4

REPORT INFORMATION
  Report Type: Spontaneous
  Country: US (occurrence: US)
  Receive Date: 20131030
  Receipt Date: 20131030
  Transmission Date: 20140711
  Serious: No
  Sender: FDA-Public Use
  Company Number: US-PURDUE-USA-2011-0062402

PATIENT
  Age: 48 Year
  Sex: Female

DRUGS (2)
  1. OXYCONTIN (NDA 22-272) [Suspect]
     Indication: PAIN
     Dosage: 40 MG, BID
  2. OXYCODONE [Concomitant]
     Indication: BREAKTHROUGH PAIN
     Dosage: 5 MG, TID

REACTIONS (13)
  - Bedridden [Unknown]
  - Mobility decreased [Unknown]
  - Quality of life decreased [Unknown]
  - Pain [Unknown]
  - Hyperhidrosis [Unknown]
  - Heart rate increased [Unknown]
  - Insomnia [Unknown]
  - Nervousness [Unknown]
  - Feeling jittery [Unknown]
  - Cold sweat [Unknown]
  - Headache [Unknown]
  - Tremor [Unknown]
  - Drug ineffective [Unknown]
